FAERS Safety Report 6546520-5 (Version None)
Quarter: 2010Q1

REPORT INFORMATION
  Report Type: 
  Country: None (occurrence: None)
  Receive Date: 20100115
  Receipt Date: 20090826
  Transmission Date: 20100710
  Serious: Yes (Hospitalization)
  Sender: FDA-Public Use
  Company Number: AUR-APL-2009-00588

PATIENT
  Age: 78 Year
  Sex: Female
  Weight: 74 kg

DRUGS (19)
  1. HYDROCHLOROTHIAZIDE [Suspect]
     Dosage: ORAL
     Route: 048
     Dates: end: 20090116
  2. EXEMESTANE [Suspect]
     Indication: BREAST CANCER
     Dosage: 25 MG - DAILY - ORAL
     Route: 048
     Dates: start: 20080612
  3. ARICEPT [Concomitant]
  4. CELEBREX [Concomitant]
  5. WARFARIN SODIUM [Concomitant]
  6. LIPITOR [Concomitant]
  7. CALCIUM WITH VITAMIN D [Concomitant]
  8. FERROUS SULFATE TAB [Concomitant]
  9. NIASPAN [Concomitant]
  10. NORVASC [Concomitant]
  11. SYNTHROID [Concomitant]
  12. THEOPHYLLINE [Concomitant]
  13. VASOTEC [Concomitant]
  14. PREVACID [Concomitant]
  15. METOPROLOL TARTRATE [Concomitant]
  16. FISH OIL [Concomitant]
  17. VICODIN [Concomitant]
  18. SEPTRA [Concomitant]
  19. LASIX [Concomitant]

REACTIONS (1)
  - HYPONATRAEMIA [None]
